FAERS Safety Report 8838233 (Version 2)
Quarter: 2015Q2

REPORT INFORMATION
  Report Type: Report from Study
  Country: US (occurrence: US)
  Receive Date: 20121012
  Receipt Date: 20150508
  Transmission Date: 20150821
  Serious: Yes (Other)
  Sender: FDA-Public Use
  Company Number: US-ROCHE-1132744

PATIENT
  Sex: Male
  Weight: 41.4 kg

DRUGS (11)
  1. SINGULAIR [Concomitant]
     Active Substance: MONTELUKAST SODIUM
     Route: 065
  2. NUTROPIN [Suspect]
     Active Substance: SOMATROPIN
     Route: 058
  3. ALBUTEROL. [Concomitant]
     Active Substance: ALBUTEROL
  4. NEXIUM [Concomitant]
     Active Substance: ESOMEPRAZOLE MAGNESIUM
     Route: 065
  5. CITRUCEL [Concomitant]
     Active Substance: METHYLCELLULOSE (4000 MPA.S)
  6. NUTROPIN [Suspect]
     Active Substance: SOMATROPIN
     Route: 058
  7. NUTROPIN [Suspect]
     Active Substance: SOMATROPIN
     Indication: SPINOCEREBELLAR ATAXIA
     Route: 058
  8. REGLAN [Concomitant]
     Active Substance: METOCLOPRAMIDE HYDROCHLORIDE
     Route: 065
  9. NUTROPIN [Suspect]
     Active Substance: SOMATROPIN
     Route: 058
  10. LAMICTAL [Concomitant]
     Active Substance: LAMOTRIGINE
     Route: 065
  11. HUMATROPE [Concomitant]
     Active Substance: SOMATROPIN

REACTIONS (12)
  - Drooling [Unknown]
  - Spinocerebellar ataxia [Unknown]
  - Constipation [Unknown]
  - Malaise [Unknown]
  - Incorrect dose administered [Unknown]
  - Off label use [Unknown]
  - Breath odour [Unknown]
  - Weight decreased [Unknown]
  - Dysphagia [Unknown]
  - Diarrhoea [Unknown]
  - Dysarthria [Unknown]
  - Vomiting [Unknown]
